FAERS Safety Report 5155834-5 (Version None)
Quarter: 2006Q4

REPORT INFORMATION
  Report Type: 
  Country: None (occurrence: None)
  Receive Date: 20061120
  Receipt Date: 20061120
  Transmission Date: 20070319
  Serious: Yes (Hospitalization, Other)
  Sender: FDA-Public Use
  Company Number: None

PATIENT
  Age: 76 Year
  Sex: Male

DRUGS (14)
  1. ASPIRIN [Suspect]
     Indication: CORONARY ARTERY DISEASE
     Dosage: 81 MG   OD    PO
     Route: 048
  2. ASPIRIN [Suspect]
     Indication: VASCULAR BYPASS GRAFT
     Dosage: 81 MG   OD    PO
     Route: 048
  3. PLAVIX [Suspect]
     Indication: CORONARY ARTERY DISEASE
     Dosage: 75 MG  OD  PO
     Route: 048
  4. LIPITOR [Concomitant]
  5. ADVAIR DISKUS 100/50 [Concomitant]
  6. COREG [Concomitant]
  7. OMEPRAZOLE [Concomitant]
  8. NEPHRO-VITE [Concomitant]
  9. ARICEPT [Concomitant]
  10. COZAAR [Concomitant]
  11. IMDUR [Concomitant]
  12. TUMS [Concomitant]
  13. EPOGEN [Concomitant]
  14. NITROGLYCERIN SL [Concomitant]

REACTIONS (3)
  - GASTROINTESTINAL HAEMORRHAGE [None]
  - POST PROCEDURAL HAEMORRHAGE [None]
  - RECTAL HAEMORRHAGE [None]
